FAERS Safety Report 9557444 (Version 1)
Quarter: 2013Q3

REPORT INFORMATION
  Report Type: Spontaneous
  Country: US (occurrence: None)
  Receive Date: 20130924
  Receipt Date: 20130924
  Transmission Date: 20140515
  Serious: Yes (Death, Hospitalization, Other)
  Sender: FDA-Public Use
  Company Number: CO-OR-IN-2013-089

PATIENT
  Age: 41 Year
  Sex: Female

DRUGS (3)
  1. PREDNISOLONE [Suspect]
  2. AMIODARONE [Suspect]
     Route: 048
  3. METOPROLOL [Suspect]

REACTIONS (2)
  - Drug ineffective [None]
  - Ventricular tachycardia [None]
